FAERS Safety Report 7297891-6 (Version None)
Quarter: 2011Q1

REPORT INFORMATION
  Report Type: 
  Country: None (occurrence: None)
  Receive Date: 20110217
  Receipt Date: 20110208
  Transmission Date: 20110831
  Serious: Yes (Life-Threatening, Hospitalization, Other)
  Sender: FDA-Public Use
  Company Number: HU-PAR PHARMACEUTICAL, INC-2011SCPR002679

PATIENT
  Age: 18 Year
  Sex: Male

DRUGS (3)
  1. TIAPRIDE [Suspect]
     Indication: TOURETTE'S DISORDER
     Dosage: UNK
     Route: 065
  2. CLONAZEPAM [Suspect]
     Indication: TOURETTE'S DISORDER
     Dosage: UNK
     Route: 065
  3. HALOPERIDOL [Suspect]
     Indication: TOURETTE'S DISORDER
     Dosage: UNK
     Route: 065

REACTIONS (14)
  - HYPERKINESIA [None]
  - DRUG INEFFECTIVE [None]
  - TIC [None]
  - PAIN [None]
  - SINUS TACHYCARDIA [None]
  - TREATMENT NONCOMPLIANCE [None]
  - PYREXIA [None]
  - HYPERHIDROSIS [None]
  - BLOOD CREATINE PHOSPHOKINASE INCREASED [None]
  - FATIGUE [None]
  - MULTIPLE INJURIES [None]
  - SLEEP DISORDER [None]
  - DRUG WITHDRAWAL SYNDROME [None]
  - OBSESSIVE-COMPULSIVE DISORDER [None]
